FAERS Safety Report 5015454-X (Version None)
Quarter: 2006Q2

REPORT INFORMATION
  Report Type: 
  Country: None (occurrence: None)
  Receive Date: 20060601
  Receipt Date: 20060418
  Transmission Date: 20061013
  Serious: Yes (Life-Threatening, Hospitalization)
  Sender: FDA-Public Use
  Company Number: US-BRISTOL-MYERS SQUIBB COMPANY-13350384

PATIENT
  Age: 64 Year
  Sex: Male
  Weight: 126 kg

DRUGS (12)
  1. ERBITUX [Suspect]
     Indication: NEOPLASM MALIGNANT
     Dosage: FIRST DOSE.
     Route: 042
     Dates: start: 20060417, end: 20060417
  2. RADIATION THERAPY [Concomitant]
  3. BENADRYL [Concomitant]
     Indication: PREMEDICATION
     Route: 042
     Dates: start: 20060417, end: 20060417
  4. ACTOS [Concomitant]
  5. LEXAPRO [Concomitant]
  6. PREVACID [Concomitant]
  7. MIRALAX [Concomitant]
  8. POTASSIUM CHLORIDE [Concomitant]
  9. ROBITUSSIN [Concomitant]
  10. ALBUTEROL SULFATE AUTOHALER [Concomitant]
  11. ATROVENT [Concomitant]
  12. XANAX [Concomitant]

REACTIONS (2)
  - CARDIO-RESPIRATORY ARREST [None]
  - DYSPNOEA [None]
